FAERS Safety Report 23760532 (Version 1)
Quarter: 2024Q2

REPORT INFORMATION
  Report Type: Spontaneous
  Country: US (occurrence: US)
  Receive Date: 20240419
  Receipt Date: 20240419
  Transmission Date: 20240716
  Serious: Yes (Other)
  Sender: FDA-Public Use
  Company Number: US-JNJFOC-20240436902

PATIENT
  Age: 68 Year
  Sex: Female

DRUGS (2)
  1. XARELTO [Suspect]
     Active Substance: RIVAROXABAN
     Indication: Deep vein thrombosis
     Route: 048
  2. XARELTO [Suspect]
     Active Substance: RIVAROXABAN
     Indication: Pulmonary embolism

REACTIONS (7)
  - Deep vein thrombosis [Unknown]
  - Fungal infection [Unknown]
  - COVID-19 [Unknown]
  - Cellulitis [Unknown]
  - Arthropod bite [Unknown]
  - Migraine [Unknown]
  - Nervousness [Unknown]

NARRATIVE: CASE EVENT DATE: 20240310
